FAERS Safety Report 7924506-3 (Version None)
Quarter: 2011Q4

REPORT INFORMATION
  Report Type: 
  Country: None (occurrence: None)
  Receive Date: 20111117
  Receipt Date: 20110322
  Transmission Date: 20120403
  Serious: No
  Sender: FDA-Public Use
  Company Number: US-AMGEN-USASP2011015588

PATIENT
  Age: 29 Year
  Sex: Male

DRUGS (3)
  1. ENBREL [Suspect]
     Indication: PSORIATIC ARTHROPATHY
     Dosage: 50 MG, QWK
     Dates: start: 20040101
  2. HUMIRA [Concomitant]
  3. ENBREL [Suspect]
     Indication: PSORIASIS

REACTIONS (5)
  - NASOPHARYNGITIS [None]
  - IMPAIRED HEALING [None]
  - INJECTION SITE PAIN [None]
  - THERAPEUTIC RESPONSE DECREASED [None]
  - PSORIATIC ARTHROPATHY [None]
